FAERS Safety Report 20790648 (Version 1)
Quarter: 2022Q2

REPORT INFORMATION
  Report Type: Spontaneous
  Country: US (occurrence: None)
  Receive Date: 20220505
  Receipt Date: 20220505
  Transmission Date: 20220721
  Serious: Yes (Other)
  Sender: FDA-Public Use
  Company Number: None

PATIENT
  Age: 55 Year
  Sex: Male
  Weight: 118.35 kg

DRUGS (1)
  1. EVUSHELD [Suspect]
     Active Substance: CILGAVIMAB\TIXAGEVIMAB
     Indication: COVID-19
     Dosage: OTHER FREQUENCY : ONE TIME INJECTION;?
     Route: 030
     Dates: start: 20220216, end: 20220216

REACTIONS (4)
  - Fatigue [None]
  - Headache [None]
  - Cough [None]
  - Job dissatisfaction [None]

NARRATIVE: CASE EVENT DATE: 20220301
